FAERS Safety Report 19919030 (Version 1)
Quarter: 2021Q4

REPORT INFORMATION
  Report Type: Spontaneous
  Country: JP (occurrence: JP)
  Receive Date: 20211005
  Receipt Date: 20211005
  Transmission Date: 20220304
  Serious: Yes (Death, Other)
  Sender: FDA-Public Use
  Company Number: JP-CELLTRION-2021-JP-000460

PATIENT
  Age: 8 Decade
  Sex: Male

DRUGS (10)
  1. ROPINIROLE HYDROCHLORIDE [Suspect]
     Active Substance: ROPINIROLE HYDROCHLORIDE
     Indication: Parkinson^s disease
     Route: 065
  2. TOCOPHEROL ACETATE [Concomitant]
     Active Substance: .ALPHA.-TOCOPHEROL ACETATE
     Route: 065
  3. AMANTADINE. [Suspect]
     Active Substance: AMANTADINE HYDROCHLORIDE
     Route: 048
  4. LEVODOPA [Concomitant]
     Active Substance: LEVODOPA
     Route: 065
  5. ZONISAMIDE [Concomitant]
     Active Substance: ZONISAMIDE
     Route: 065
  6. SILODOSIN [Concomitant]
     Active Substance: SILODOSIN
     Route: 065
  7. NITRAZEPAM [Concomitant]
     Active Substance: NITRAZEPAM
     Route: 065
  8. MAGNESIUM OXIDE [Concomitant]
     Active Substance: MAGNESIUM OXIDE
     Route: 065
  9. ENTACAPONE [Concomitant]
     Active Substance: ENTACAPONE
     Route: 065
  10. DUTASTERIDE [Concomitant]
     Active Substance: DUTASTERIDE
     Route: 065

REACTIONS (3)
  - Arrhythmia [Fatal]
  - Shock [Fatal]
  - Toxicity to various agents [Fatal]
